FAERS Safety Report 18190101 (Version 1)
Quarter: 2020Q3

REPORT INFORMATION
  Report Type: Report from Study
  Country: US (occurrence: US)
  Receive Date: 20200824
  Receipt Date: 20200824
  Transmission Date: 20201103
  Serious: Yes (Hospitalization)
  Sender: FDA-Public Use
  Company Number: US-ACTELION-A-NJ2020-208347

PATIENT
  Sex: Female
  Weight: 80.27 kg

DRUGS (2)
  1. UPTRAVI [Suspect]
     Active Substance: SELEXIPAG
     Indication: PULMONARY ARTERIAL HYPERTENSION
     Dosage: 200 MCG, BID
     Route: 048
  2. SILDENAFIL CITRATE. [Concomitant]
     Active Substance: SILDENAFIL CITRATE

REACTIONS (10)
  - Headache [Unknown]
  - Cardiomyopathy [Unknown]
  - Musculoskeletal pain [Unknown]
  - Confusional state [Unknown]
  - Product dose omission issue [Recovered/Resolved]
  - Muscle tightness [Unknown]
  - Toothache [Unknown]
  - Dyspnoea [Unknown]
  - Cyanosis [Unknown]
  - Pain in jaw [Unknown]
